FAERS Safety Report 10177340 (Version 1)
Quarter: 2014Q2

REPORT INFORMATION
  Report Type: Spontaneous
  Country: DE (occurrence: DE)
  Receive Date: 20140516
  Receipt Date: 20140516
  Transmission Date: 20141212
  Serious: Yes (Life-Threatening, Hospitalization)
  Sender: FDA-Public Use
  Company Number: GXKR2014DE001902

PATIENT
  Sex: 0

DRUGS (2)
  1. ACETYLSALICYLIC ACID [Suspect]
     Dosage: 1 DF, QD
  2. CLOPIDOGREL [Interacting]
     Dosage: DAILY DOSE: 1 DF DOSAGE FORM EVERY DAYS

REACTIONS (1)
  - Upper gastrointestinal haemorrhage [Unknown]
